FAERS Safety Report 9401486 (Version 1)
Quarter: 2013Q3

REPORT INFORMATION
  Report Type: Spontaneous
  Country: JP (occurrence: JP)
  Receive Date: 20130716
  Receipt Date: 20130716
  Transmission Date: 20140515
  Serious: Yes (Death)
  Sender: FDA-Public Use
  Company Number: JP-PFIZER INC-2013205458

PATIENT
  Age: 51 Year
  Sex: Female

DRUGS (5)
  1. ADRIACIN [Suspect]
     Indication: SYNOVIAL SARCOMA
     Route: 042
  2. IFOSFAMIDE [Suspect]
     Route: 042
  3. GEMCITABINE [Suspect]
  4. ETOPOSIDE [Suspect]
     Route: 041
  5. DOCETAXEL [Suspect]
     Indication: METASTASES TO LUNG

REACTIONS (2)
  - Second primary malignancy [Fatal]
  - Acute myeloid leukaemia [Fatal]
